FAERS Safety Report 10904296 (Version 2)
Quarter: 2015Q1

REPORT INFORMATION
  Report Type: Spontaneous
  Country: FR (occurrence: FR)
  Receive Date: 20150311
  Receipt Date: 20150326
  Transmission Date: 20150721
  Serious: Yes (Hospitalization)
  Sender: FDA-Public Use
  Company Number: FR-PFIZER INC-2015079984

PATIENT
  Age: 13 Year
  Sex: Female
  Weight: 53.8 kg

DRUGS (14)
  1. METHOTREXATE (METHOTREXATE SODIUM) [Suspect]
     Active Substance: METHOTREXATE SODIUM
     Indication: ACUTE MYELOID LEUKAEMIA
     Dosage: 15 MG, DAILY
     Route: 024
     Dates: start: 20141215, end: 20141215
  2. ONDANSETRON ACCORD [Suspect]
     Active Substance: ONDANSETRON
     Indication: ACUTE MYELOID LEUKAEMIA
     Dosage: 7.65 MG, 2X/DAY
     Route: 041
     Dates: start: 20141215, end: 20141218
  3. CALCIUM FOLINATE [Suspect]
     Active Substance: LEUCOVORIN CALCIUM
     Dosage: 15 MG, 2X/DAY
     Route: 041
     Dates: start: 20141219, end: 20141219
  4. DEPO-MEDROL [Suspect]
     Active Substance: METHYLPREDNISOLONE ACETATE
     Dosage: 20 MG, DAILY
     Route: 024
     Dates: start: 20141218, end: 20141218
  5. DEPO-MEDROL [Suspect]
     Active Substance: METHYLPREDNISOLONE ACETATE
     Dosage: 20 MG, DAILY
     Route: 024
     Dates: start: 20141221, end: 20141221
  6. CERUBIDINE [Suspect]
     Active Substance: DAUNORUBICIN HYDROCHLORIDE
     Indication: ACUTE MYELOID LEUKAEMIA
     Dosage: 61 MG, DAILY
     Dates: start: 20141215, end: 20141218
  7. CALCIUM FOLINATE [Suspect]
     Active Substance: LEUCOVORIN CALCIUM
     Dosage: 15 MG, 2X/DAY
     Route: 041
     Dates: start: 20141216, end: 20141216
  8. ARACYTINE [Suspect]
     Active Substance: CYTARABINE
     Indication: ACUTE MYELOID LEUKAEMIA
     Dosage: 30 MG, DAILY, ONCE
     Route: 024
     Dates: start: 20141215, end: 20141215
  9. METHOTREXATE (METHOTREXATE SODIUM) [Suspect]
     Active Substance: METHOTREXATE SODIUM
     Dosage: 15 MG, DAILY
     Route: 024
     Dates: start: 20141218, end: 20141218
  10. DEPO-MEDROL [Suspect]
     Active Substance: METHYLPREDNISOLONE ACETATE
     Indication: ACUTE MYELOID LEUKAEMIA
     Dosage: 20 MG, DAILY
     Route: 024
     Dates: start: 20141215, end: 20141215
  11. CYTARABINE EBEWE [Suspect]
     Active Substance: CYTARABINE
     Indication: ACUTE MYELOID LEUKAEMIA
     Dosage: 310 MG, DAILY
     Route: 041
     Dates: start: 20141215, end: 20141218
  12. BIONOLYTE [Concomitant]
     Active Substance: UNSPECIFIED INGREDIENT
     Dosage: 3060 ML, UNK
     Route: 041
     Dates: start: 20141215, end: 20141218
  13. ETOPOSIDE-TEVA [Suspect]
     Active Substance: ETOPOSIDE
     Indication: ACUTE MYELOID LEUKAEMIA
     Dosage: 150 MG, DAILY
     Route: 041
     Dates: start: 20141215, end: 20141218
  14. CALCIUM FOLINATE [Suspect]
     Active Substance: LEUCOVORIN CALCIUM
     Indication: ACUTE MYELOID LEUKAEMIA
     Dosage: 22.95 MG, 2X/DAY
     Route: 042
     Dates: start: 20141215, end: 20141215

REACTIONS (7)
  - Pyrexia [Unknown]
  - Nausea [Recovered/Resolved]
  - Odynophagia [Unknown]
  - Vomiting [Recovered/Resolved]
  - Febrile bone marrow aplasia [Recovered/Resolved]
  - Mucosal inflammation [Recovered/Resolved]
  - Diarrhoea [Recovered/Resolved]

NARRATIVE: CASE EVENT DATE: 201412
